FAERS Safety Report 20933654 (Version 1)
Quarter: 2022Q2

REPORT INFORMATION
  Report Type: Spontaneous
  Country: CN (occurrence: CN)
  Receive Date: 20220608
  Receipt Date: 20220608
  Transmission Date: 20220720
  Serious: Yes (Other)
  Sender: FDA-Public Use
  Company Number: CN-MYLANLABS-2022M1043136

PATIENT
  Age: 22 Year
  Sex: Female
  Weight: 45 kg

DRUGS (3)
  1. ARIXTRA [Suspect]
     Active Substance: FONDAPARINUX SODIUM
     Indication: Abortion threatened
     Dosage: 2.5 MILLIGRAM, QD
     Route: 058
     Dates: start: 20220520, end: 20220530
  2. HUGON [Concomitant]
     Dosage: UNK
     Dates: start: 20220520, end: 20220530
  3. PROGESTERONE [Concomitant]
     Active Substance: PROGESTERONE
     Dosage: 20 MILLIGRAM, QD
     Route: 030
     Dates: start: 20220510, end: 20220530

REACTIONS (2)
  - Hepatic function abnormal [Recovered/Resolved]
  - Off label use [Unknown]

NARRATIVE: CASE EVENT DATE: 20220520
